FAERS Safety Report 12555734 (Version 1)
Quarter: 2016Q3

REPORT INFORMATION
  Report Type: Spontaneous
  Country: US (occurrence: None)
  Receive Date: 20160713
  Receipt Date: 20160713
  Transmission Date: 20161109
  Serious: Yes (Hospitalization)
  Sender: FDA-Public Use
  Company Number: None

PATIENT
  Age: 59 Year
  Sex: Female
  Weight: 157 kg

DRUGS (10)
  1. SOLU-MEDROL [Suspect]
     Active Substance: METHYLPREDNISOLONE SODIUM SUCCINATE
     Route: 042
     Dates: start: 20160120, end: 20160122
  2. FISH OIL [Concomitant]
     Active Substance: FISH OIL
  3. PRAVASTATIN. [Concomitant]
     Active Substance: PRAVASTATIN
  4. ALEMTUZUMAB GENZYME [Suspect]
     Active Substance: ALEMTUZUMAB
     Indication: MULTIPLE SCLEROSIS
     Route: 042
     Dates: start: 20160120, end: 20160122
  5. AMANTADINE [Concomitant]
     Active Substance: AMANTADINE
  6. CLONAZEPAM. [Concomitant]
     Active Substance: CLONAZEPAM
  7. VITAMIN D3 [Concomitant]
     Active Substance: CHOLECALCIFEROL
  8. ACYCLOVIR. [Concomitant]
     Active Substance: ACYCLOVIR
  9. BACLOFEN. [Concomitant]
     Active Substance: BACLOFEN
  10. PAXIL CR [Concomitant]
     Active Substance: PAROXETINE HYDROCHLORIDE

REACTIONS (1)
  - Withdrawal syndrome [None]

NARRATIVE: CASE EVENT DATE: 20160711
